FAERS Safety Report 4817037-0 (Version None)
Quarter: 2005Q4

REPORT INFORMATION
  Report Type: 
  Country: None (occurrence: None)
  Receive Date: 20051101
  Receipt Date: 20051019
  Transmission Date: 20060501
  Serious: Yes (Death)
  Sender: FDA-Public Use
  Company Number: GB-GLAXOSMITHKLINE-B0398499A

PATIENT
  Sex: Female

DRUGS (8)
  1. ATROVENT [Suspect]
     Indication: CHRONIC OBSTRUCTIVE PULMONARY DISEASE
     Dosage: 500MCG FOUR TIMES PER DAY
     Route: 055
  2. SALBUTAMOL [Suspect]
     Dosage: 2PUFF FOUR TIMES PER DAY
     Route: 055
  3. AMINOPHYLLINE [Suspect]
     Dosage: 225MG PER DAY
  4. CARBOCISTEINE [Suspect]
     Dosage: 750MG THREE TIMES PER DAY
  5. LEVOFLOXACIN [Suspect]
     Dosage: 500MG TWICE PER DAY
  6. FUROSEMIDE [Suspect]
     Dosage: 40MG PER DAY
  7. TRAMADOL [Suspect]
     Dosage: 50MG THREE TIMES PER DAY
  8. PREDNISOLONE [Suspect]

REACTIONS (1)
  - CHRONIC OBSTRUCTIVE PULMONARY DISEASE [None]
